FAERS Safety Report 19507718 (Version 2)
Quarter: 2021Q3

REPORT INFORMATION
  Report Type: Spontaneous
  Country: GB (occurrence: GB)
  Receive Date: 20210708
  Receipt Date: 20210715
  Transmission Date: 20211014
  Serious: Yes (Other)
  Sender: FDA-Public Use
  Company Number: GB-ASTRAZENECA-2021A600227

PATIENT
  Age: 48 Year
  Sex: Female
  Weight: 47.6 kg

DRUGS (1)
  1. SYMBICORT [Suspect]
     Active Substance: BUDESONIDE\FORMOTEROL FUMARATE DIHYDRATE
     Indication: ASTHMA
     Dosage: 4 PUFFS EVERY DAY
     Route: 055
     Dates: start: 2019, end: 2020

REACTIONS (4)
  - Product prescribing error [Unknown]
  - Dyspnoea [Unknown]
  - Reaction to excipient [Unknown]
  - Asthma [Unknown]

NARRATIVE: CASE EVENT DATE: 2019
